FAERS Safety Report 5515631-5 (Version None)
Quarter: 2007Q4

REPORT INFORMATION
  Report Type: 
  Country: None (occurrence: None)
  Receive Date: 20071113
  Receipt Date: 20070713
  Transmission Date: 20080405
  Serious: No
  Sender: FDA-Public Use
  Company Number: A0664014A

PATIENT
  Age: 79 Year
  Sex: Female

DRUGS (2)
  1. COREG [Suspect]
     Dosage: 3.125MG TWICE PER DAY
     Route: 048
     Dates: start: 19940101
  2. PROZAC [Concomitant]

REACTIONS (2)
  - EYE DISORDER [None]
  - VISION BLURRED [None]
